FAERS Safety Report 17095147 (Version 1)
Quarter: 2019Q4

REPORT INFORMATION
  Report Type: Spontaneous
  Country: ES (occurrence: ES)
  Receive Date: 20191130
  Receipt Date: 20191130
  Transmission Date: 20200122
  Serious: Yes (Hospitalization)
  Sender: FDA-Public Use
  Company Number: ES-TEVA-2019-ES-1143064

PATIENT
  Age: 61 Year
  Sex: Male

DRUGS (1)
  1. CAPECITABINA (1224A) [Suspect]
     Active Substance: CAPECITABINE
     Route: 065
     Dates: start: 20191017

REACTIONS (1)
  - Acute coronary syndrome [Recovered/Resolved]

NARRATIVE: CASE EVENT DATE: 20191023
